FAERS Safety Report 5328681-9 (Version None)
Quarter: 2007Q2

REPORT INFORMATION
  Report Type: 
  Country: None (occurrence: None)
  Receive Date: 20070518
  Receipt Date: 20070516
  Transmission Date: 20071010
  Serious: Yes (Other)
  Sender: FDA-Public Use
  Company Number: A0651828A

PATIENT
  Age: 56 Year
  Sex: Female

DRUGS (9)
  1. AMOXICILLIN + CLAVULANATE POTASSIUM [Suspect]
     Indication: SINUSITIS
     Dosage: 875MG PER DAY
     Route: 065
     Dates: start: 20070506
  2. COMBIPATCH [Concomitant]
     Indication: HORMONE REPLACEMENT THERAPY
  3. EFFEXOR XR [Concomitant]
  4. WELLBUTRIN XL [Concomitant]
  5. TOPAMAX [Concomitant]
  6. KLONOPIN [Concomitant]
  7. CELEBREX [Concomitant]
  8. VICODIN [Concomitant]
  9. BECONASE AQ [Concomitant]

REACTIONS (3)
  - DEPRESSION [None]
  - MALAISE [None]
  - SUICIDAL IDEATION [None]
